FAERS Safety Report 10077130 (Version 1)
Quarter: 2014Q2

REPORT INFORMATION
  Report Type: Spontaneous
  Country: US (occurrence: US)
  Receive Date: 20140414
  Receipt Date: 20140414
  Transmission Date: 20141212
  Serious: Yes (Other)
  Sender: FDA-Public Use
  Company Number: US-WATSON-2014-07238

PATIENT
  Age: 31 Year
  Sex: Female
  Weight: 73 kg

DRUGS (2)
  1. TERCONAZOLE [Suspect]
     Indication: FUNGAL INFECTION
     Dosage: 1 DF, QHS
     Route: 067
     Dates: start: 20140307, end: 20140309
  2. PRENATAL VITAMINS                  /01549301/ [Concomitant]
     Indication: NUTRITIONAL SUPPLEMENTATION
     Dosage: UNK, DAILY
     Route: 048
     Dates: start: 20140224

REACTIONS (4)
  - Foetal death [Not Recovered/Not Resolved]
  - Thrombosis [Recovered/Resolved]
  - Vaginal haemorrhage [Recovered/Resolved]
  - Exposure during pregnancy [Recovered/Resolved]
